FAERS Safety Report 7973914-3 (Version None)
Quarter: 2011Q4

REPORT INFORMATION
  Report Type: 
  Country: None (occurrence: None)
  Receive Date: 20111213
  Receipt Date: 20111201
  Transmission Date: 20120403
  Serious: Yes (Other)
  Sender: FDA-Public Use
  Company Number: JP-ROCHE-1017852

PATIENT
  Age: 75 Year
  Sex: Female
  Weight: 47 kg

DRUGS (3)
  1. ROCEPHIN [Suspect]
     Indication: SEPSIS
     Dosage: 2G-4G/DAY
     Route: 042
     Dates: start: 20090101
  2. NOVORAPID [Concomitant]
     Indication: DIABETIC KETOACIDOSIS
     Route: 042
     Dates: start: 20090101
  3. INSULIN [Concomitant]
     Indication: DIABETIC KETOACIDOSIS
     Dosage: DOSAGE IS UNCERTAIN.
     Route: 042
     Dates: start: 20090101, end: 20090101

REACTIONS (2)
  - PANCREATIC ENZYMES INCREASED [None]
  - RENAL FAILURE ACUTE [None]
